FAERS Safety Report 4593905-2 (Version None)
Quarter: 2005Q1

REPORT INFORMATION
  Report Type: 
  Country: None (occurrence: None)
  Receive Date: 20050218
  Receipt Date: 20050202
  Transmission Date: 20050727
  Serious: Yes (Other)
  Sender: FDA-Public Use
  Company Number: 200509250

PATIENT
  Age: 69 Year
  Sex: Female

DRUGS (1)
  1. IVIG (UNKNOWN) [Suspect]
     Indication: CHRONIC INFLAMMATORY DEMYELINATING POLYRADICULONEUROPATHY
     Dosage: 400 MG/KG DAILY IV
     Route: 042

REACTIONS (9)
  - BLOOD PRESSURE INCREASED [None]
  - CEREBELLAR ARTERY THROMBOSIS [None]
  - CEREBELLAR SYNDROME [None]
  - DYSPHAGIA [None]
  - INFARCTION [None]
  - NAUSEA [None]
  - SENSORY LOSS [None]
  - VERTEBROBASILAR INSUFFICIENCY [None]
  - VOMITING [None]
